FAERS Safety Report 4278892-9 (Version None)
Quarter: 2004Q1

REPORT INFORMATION
  Report Type: 
  Country: None (occurrence: None)
  Receive Date: 20040122
  Receipt Date: 20040112
  Transmission Date: 20041129
  Serious: Yes (Hospitalization)
  Sender: FDA-Public Use
  Company Number: 04P-163-0246825-00

PATIENT
  Age: 83 Year
  Sex: Female

DRUGS (9)
  1. HUMIRA [Suspect]
     Indication: RHEUMATOID ARTHRITIS
     Dosage: 40 MG, 1 IN 2 WK, SUBCUTANEOUS
     Route: 058
     Dates: start: 20030101, end: 20030901
  2. VERAPAMIL HYDROCHLORIDE [Concomitant]
  3. AZATHIOPRINE [Concomitant]
  4. FUROSEMIDE [Concomitant]
  5. COUMADIN [Concomitant]
  6. PREDNISOLONE [Concomitant]
  7. ALENDRONATE SODIUM [Concomitant]
  8. POTASSIUM [Concomitant]
  9. CALCIUM [Concomitant]

REACTIONS (2)
  - DYSPNOEA [None]
  - PHLEBITIS [None]
